FAERS Safety Report 18185344 (Version 1)
Quarter: 2020Q3

REPORT INFORMATION
  Report Type: Spontaneous
  Country: US (occurrence: US)
  Receive Date: 20200823
  Receipt Date: 20200823
  Transmission Date: 20201103
  Serious: Yes (Other)
  Sender: FDA-Public Use
  Company Number: None

PATIENT
  Age: 28 Year
  Sex: Female
  Weight: 49 kg

DRUGS (8)
  1. DEXADRON [Concomitant]
     Dates: start: 20200819, end: 20200823
  2. REMDESIVIR. [Suspect]
     Active Substance: REMDESIVIR
     Indication: COVID-19
     Dosage: ?          OTHER FREQUENCY:200MG X1, 100MG X1;?
     Route: 042
     Dates: start: 20200819, end: 20200820
  3. CEFTRIAXONE. [Concomitant]
     Active Substance: CEFTRIAXONE
     Dates: start: 20200819, end: 20200823
  4. ZINC. [Concomitant]
     Active Substance: ZINC
     Dates: start: 20200819, end: 20200823
  5. ACETOMINOPHEN [Concomitant]
     Active Substance: ACETAMINOPHEN
     Dates: start: 20200819, end: 20200823
  6. DOXYCYCLINE. [Concomitant]
     Active Substance: DOXYCYCLINE
     Dates: start: 20200819, end: 20200823
  7. MELATONIN [Concomitant]
     Active Substance: MELATONIN
     Dates: start: 20200819, end: 20200823
  8. ROBOTUSSIN DM [Concomitant]
     Dates: start: 20200819, end: 20200823

REACTIONS (3)
  - Fatigue [None]
  - Hyperhidrosis [None]
  - Nausea [None]

NARRATIVE: CASE EVENT DATE: 20200821
